FAERS Safety Report 6133189-7 (Version None)
Quarter: 2009Q1

REPORT INFORMATION
  Report Type: 
  Country: None (occurrence: None)
  Receive Date: 20090324
  Receipt Date: 20090309
  Transmission Date: 20090719
  Serious: Yes (Hospitalization)
  Sender: FDA-Public Use
  Company Number: 430014M09USA

PATIENT
  Age: 62 Year
  Sex: Male
  Weight: 94 kg

DRUGS (22)
  1. NOVANTRONE [Suspect]
     Indication: PROSTATE CANCER
     Dosage: 25 MG, 1 IN 3 WEEKS, INTRAVENOUS (NOT OTHERWISE SPECIFED)
     Route: 042
     Dates: start: 20080814, end: 20080904
  2. NOVANTRONE [Suspect]
     Indication: PROSTATE CANCER
     Dosage: 25 MG, 1 IN 3 WEEKS, INTRAVENOUS (NOT OTHERWISE SPECIFED)
     Route: 042
     Dates: start: 20081009
  3. CETUXIMAB (CETUXIMAB) [Suspect]
     Indication: PROSTATE CANCER METASTATIC
     Dosage: 529 MG, 1 IN 1 WEEKS, INTRAVENOUS (NOT OTHERWISE SPECIFED) : 75.57 MG, 1 IN 1 WEEKS, INTRAVENOUS
     Route: 042
     Dates: start: 20080814, end: 20080911
  4. CETUXIMAB (CETUXIMAB) [Suspect]
     Indication: PROSTATE CANCER METASTATIC
     Dosage: 529 MG, 1 IN 1 WEEKS, INTRAVENOUS (NOT OTHERWISE SPECIFED) : 75.57 MG, 1 IN 1 WEEKS, INTRAVENOUS
     Route: 042
     Dates: start: 20081009
  5. OXYBUTYNIN CHLORIDE [Concomitant]
  6. PROSED/DS [Concomitant]
  7. HYDROCHLOROTHIAZIDE [Concomitant]
  8. LISINOPRIL [Concomitant]
  9. ATENOLOL [Concomitant]
  10. COUMADIN [Concomitant]
  11. LORAZEPAM [Concomitant]
  12. VITAMIN D [Concomitant]
  13. OXYCODONE HCL [Concomitant]
  14. COMPAZINE [Concomitant]
  15. AMBIEN [Concomitant]
  16. PERI-COLACE [Concomitant]
  17. PREDNISONE [Concomitant]
  18. ARANESP [Concomitant]
  19. MACROBID [Concomitant]
  20. DESITIN [Concomitant]
  21. GAVISCON [Concomitant]
  22. ZOMETA [Concomitant]

REACTIONS (11)
  - ABSCESS RUPTURE [None]
  - BLOOD PRESSURE DIASTOLIC DECREASED [None]
  - CELLULITIS [None]
  - FEBRILE NEUTROPENIA [None]
  - HAEMATOCRIT DECREASED [None]
  - HAEMOGLOBIN DECREASED [None]
  - PLATELET COUNT DECREASED [None]
  - PSEUDOMONAS INFECTION [None]
  - SEPTIC EMBOLUS [None]
  - STAPHYLOCOCCAL INFECTION [None]
  - TRICUSPID VALVE INCOMPETENCE [None]
